FAERS Safety Report 7709621-1 (Version None)
Quarter: 2011Q3

REPORT INFORMATION
  Report Type: 
  Country: None (occurrence: None)
  Receive Date: 20110825
  Receipt Date: 20110810
  Transmission Date: 20111222
  Serious: Yes (Death, Hospitalization)
  Sender: FDA-Public Use
  Company Number: US-GLAXOSMITHKLINE-A0875243A

PATIENT
  Age: 47 Year
  Sex: Female

DRUGS (9)
  1. AVANDIA [Suspect]
     Indication: DIABETES MELLITUS
     Dosage: 4MG TWICE PER DAY
     Route: 048
     Dates: start: 20000301, end: 20010817
  2. ZOCOR [Concomitant]
  3. DITROPAN [Concomitant]
  4. INSULIN [Concomitant]
  5. ZEBETA [Concomitant]
  6. LANOXIN [Concomitant]
  7. PRILOSEC [Concomitant]
  8. FLOVENT [Concomitant]
  9. ALTACE [Concomitant]

REACTIONS (3)
  - MYOCARDIAL INFARCTION [None]
  - CARDIAC FAILURE CONGESTIVE [None]
  - DEATH [None]
